FAERS Safety Report 5741650-X (Version None)
Quarter: 2008Q2

REPORT INFORMATION
  Report Type: 
  Country: None (occurrence: None)
  Receive Date: 20080519
  Receipt Date: 20061114
  Transmission Date: 20081010
  Serious: No
  Sender: FDA-Public Use
  Company Number: US-BAYER-US-2006-035793

PATIENT

DRUGS (1)
  1. FLUDARA [Suspect]

REACTIONS (2)
  - DYSPNOEA [None]
  - RASH [None]
